FAERS Safety Report 10412526 (Version 1)
Quarter: 2014Q2

REPORT INFORMATION
  Report Type: Spontaneous
  Country: US (occurrence: None)
  Receive Date: 20140604
  Receipt Date: 20140604
  Transmission Date: 20141212
  Serious: Yes (Hospitalization)
  Sender: FDA-Public Use
  Company Number: 163-POMAL-14022601

PATIENT
  Age: 66 Year
  Sex: Male

DRUGS (13)
  1. POMALYST (POMALIDOMIDE) (CAPSULES) [Suspect]
     Indication: PLASMA CELL MYELOMA
     Dosage: 2 MG, 14 IN 28 D, PO
     Route: 048
     Dates: start: 20140127
  2. AZITHROMYCIN (AZITHROMYCIN) [Concomitant]
  3. TAMIFLU (OSELTAMIVIR) [Concomitant]
  4. VALACYCLOVIR (VALACYCLOVIR) [Concomitant]
  5. LORAZEPAM (LORAZEPAM) [Concomitant]
  6. METANX (METANX) [Concomitant]
  7. GABAPENTIN (GABAPENTIN) [Concomitant]
  8. DEXAMETHASONE (DEXAMETHASONE) [Concomitant]
  9. FLUCONAZOLE (FLUCONAZOLE) [Concomitant]
  10. LEVOFLOXACIN (LEVOFLOXACIN) [Concomitant]
  11. CYMBALTA (DULOXETINE HYDROCHLORIDE) [Concomitant]
  12. POTASSIUM CHLORIDE (POTASSIUM CHLORIDE) [Concomitant]
  13. FLUDROCORTISONE (FLUDROCORTISONE) [Concomitant]

REACTIONS (2)
  - Vomiting [None]
  - Diarrhoea [None]
